FAERS Safety Report 14454708 (Version 2)
Quarter: 2018Q3

REPORT INFORMATION
  Report Type: Spontaneous
  Country: US (occurrence: US)
  Receive Date: 20180129
  Receipt Date: 20180718
  Transmission Date: 20181010
  Serious: Yes (Hospitalization)
  Sender: FDA-Public Use
  Company Number: US-DSJP-DSU-2017-137149

PATIENT

DRUGS (2)
  1. BENICAR [Suspect]
     Active Substance: OLMESARTAN MEDOXOMIL
     Indication: HYPERTENSION
     Dosage: 20 MG, QD
     Route: 048
     Dates: start: 20050222, end: 20170714
  2. BENICAR [Suspect]
     Active Substance: OLMESARTAN MEDOXOMIL
     Dosage: 20 MG, QD
     Route: 048
     Dates: start: 20170717, end: 20170830

REACTIONS (10)
  - Constipation [Not Recovered/Not Resolved]
  - Clostridium difficile colitis [Recovered/Resolved]
  - Impaired gastric emptying [Not Recovered/Not Resolved]
  - Barrett^s oesophagus [Not Recovered/Not Resolved]
  - Sprue-like enteropathy [Recovering/Resolving]
  - Haemorrhoids [Unknown]
  - Polyp [Recovered/Resolved]
  - Hypotension [Recovered/Resolved]
  - Gastrooesophageal reflux disease [Not Recovered/Not Resolved]
  - Occult blood positive [Unknown]

NARRATIVE: CASE EVENT DATE: 20100719
